FAERS Safety Report 23654632 (Version 12)
Quarter: 2025Q3

REPORT INFORMATION
  Report Type: Report from Study
  Country: US (occurrence: US)
  Receive Date: 20240320
  Receipt Date: 20250828
  Transmission Date: 20251020
  Serious: Yes (Hospitalization, Other)
  Sender: JAZZ
  Company Number: USA-GW00300-2024-GWEP19022 - CANNABIDIOL IN LGS AND DS000003

PATIENT
  Age: 36 Year
  Sex: Male
  Weight: 42 kg

DRUGS (28)
  1. EPIDIOLEX [Suspect]
     Active Substance: CANNABIDIOL
     Indication: Epilepsy
  2. EPIDIOLEX [Suspect]
     Active Substance: CANNABIDIOL
     Dosage: 2 MILLIGRAM, TID
     Dates: start: 2019, end: 20240220
  3. EPIDIOLEX [Suspect]
     Active Substance: CANNABIDIOL
     Dosage: 2 MILLILITER, TID
     Dates: start: 20190615
  4. EPIDIOLEX [Suspect]
     Active Substance: CANNABIDIOL
  5. EPIDIOLEX [Suspect]
     Active Substance: CANNABIDIOL
     Dosage: 13.5 MILLIGRAM/KILOGRAM, QD
     Dates: start: 20240206
  6. EPIDIOLEX [Suspect]
     Active Substance: CANNABIDIOL
  7. EPIDIOLEX [Suspect]
     Active Substance: CANNABIDIOL
     Dosage: 1.5 MILLILITER, BID
     Dates: start: 20240221
  8. EPIDIOLEX [Suspect]
     Active Substance: CANNABIDIOL
     Dosage: 2 MILLILITER, QD
     Dates: start: 20240221
  9. EPIDIOLEX [Suspect]
     Active Substance: CANNABIDIOL
     Dosage: 2 MILLILITER, QD
     Dates: start: 20240403
  10. EPIDIOLEX [Suspect]
     Active Substance: CANNABIDIOL
  11. EPIDIOLEX [Suspect]
     Active Substance: CANNABIDIOL
  12. DEPAKOTE ER [Concomitant]
     Active Substance: DIVALPROEX SODIUM
     Indication: Epilepsy
  13. DIAZEPAM [Concomitant]
     Active Substance: DIAZEPAM
     Indication: Epilepsy
  14. DILANTIN [Concomitant]
     Active Substance: PHENYTOIN
     Indication: Epilepsy
     Dosage: 100 MILLIGRAM, BID
     Dates: start: 20080615, end: 20241130
  15. LORAZEPAM [Concomitant]
     Active Substance: LORAZEPAM
     Indication: Epilepsy
     Dosage: 0.5 MILLIGRAM, QID
     Dates: start: 20080615
  16. OMEPRAZOLE [Concomitant]
     Active Substance: OMEPRAZOLE
     Indication: Gastrooesophageal reflux disease
  17. SENNOSIDES [Concomitant]
     Active Substance: SENNOSIDES
     Indication: Constipation
  18. LEVOCARNITINE [Concomitant]
     Active Substance: LEVOCARNITINE
     Indication: Epilepsy
     Dosage: 330 MILLIGRAM, BID
     Dates: start: 20150615
  19. LACOSAMIDE [Concomitant]
     Active Substance: LACOSAMIDE
     Indication: Epilepsy
     Dosage: 100 MILLIGRAM, QD
     Dates: start: 20240221
  20. DIVALPROEX SODIUM [Concomitant]
     Active Substance: DIVALPROEX SODIUM
  21. PIPERACILLIN AND TAZOBACTAM [Concomitant]
     Active Substance: PIPERACILLIN SODIUM\TAZOBACTAM SODIUM
     Indication: Sepsis
     Dates: start: 20240326, end: 20240329
  22. DOXYCYCLINE [Concomitant]
     Active Substance: DOXYCYCLINE
     Indication: Sepsis
     Dosage: 100 MILLIGRAM, BID
     Dates: start: 20240331, end: 20240406
  23. MIRTAZAPINE [Concomitant]
     Active Substance: MIRTAZAPINE
     Indication: Decreased appetite
     Dates: start: 20240227, end: 20240302
  24. MULTIVITAMINS WITH MINERALS [ASCORBIC ACID;CALCIUM PANTOTHENATE;CYANOC [Concomitant]
     Indication: Metabolic encephalopathy
     Dates: start: 20240227, end: 20240306
  25. FERROUS SULFATE [Concomitant]
     Active Substance: FERROUS SULFATE
     Indication: Metabolic encephalopathy
     Dates: start: 20240228, end: 20250306
  26. PYRIDOXINE [Concomitant]
     Active Substance: PYRIDOXINE
     Indication: Metabolic encephalopathy
     Dates: start: 20240228, end: 20240306
  27. AMPHETAMINE SULFATE [Concomitant]
     Active Substance: AMPHETAMINE SULFATE
     Indication: Gastrostomy
     Dates: start: 20240229, end: 20240303
  28. REMDESIVIR [Concomitant]
     Active Substance: REMDESIVIR
     Indication: Metabolic encephalopathy
     Dates: start: 20240301, end: 20240301

REACTIONS (7)
  - Metabolic encephalopathy [Recovered/Resolved]
  - Hypernatraemia [Recovered/Resolved]
  - Device malfunction [Recovered/Resolved]
  - Sepsis [Recovered/Resolved]
  - Hypophagia [Recovered/Resolved]
  - Lethargy [Recovered/Resolved]
  - COVID-19 [Recovered/Resolved]

NARRATIVE: CASE EVENT DATE: 20240206
